FAERS Safety Report 6504344-9 (Version None)
Quarter: 2009Q4

REPORT INFORMATION
  Report Type: 
  Country: None (occurrence: None)
  Receive Date: 20091217
  Receipt Date: 20091208
  Transmission Date: 20100525
  Serious: Yes (Other)
  Sender: FDA-Public Use
  Company Number: FR-ELI_LILLY_AND_COMPANY-FR200905001155

PATIENT
  Age: 46 Year
  Sex: Female

DRUGS (3)
  1. BYETTA [Suspect]
     Indication: TYPE 2 DIABETES MELLITUS
     Dosage: UNK, UNKNOWN
     Route: 058
     Dates: start: 20080101, end: 20080901
  2. LEVEMIR [Concomitant]
     Indication: DIABETES MELLITUS
     Route: 058
     Dates: end: 20090301
  3. GLUCOPHAGE [Concomitant]
     Indication: DIABETES MELLITUS
     Dosage: UNK, UNKNOWN
     Route: 048

REACTIONS (2)
  - HEPATIC STEATOSIS [None]
  - HEPATOCELLULAR INJURY [None]
